FAERS Safety Report 6486157-X (Version None)
Quarter: 2009Q4

REPORT INFORMATION
  Report Type: 
  Country: None (occurrence: None)
  Receive Date: 20091207
  Receipt Date: 20091123
  Transmission Date: 20100525
  Serious: Yes (Hospitalization)
  Sender: FDA-Public Use
  Company Number: 2009AC000445

PATIENT
  Age: 64 Year
  Sex: Female

DRUGS (1)
  1. DIGOXIN [Suspect]
     Dosage: PO
     Route: 048
     Dates: start: 19950101

REACTIONS (7)
  - ARTERIAL OCCLUSIVE DISEASE [None]
  - ECONOMIC PROBLEM [None]
  - HEADACHE [None]
  - HYPOTENSION [None]
  - MULTIPLE INJURIES [None]
  - SURGERY [None]
  - UNEVALUABLE EVENT [None]
